FAERS Safety Report 17090854 (Version 1)
Quarter: 2019Q4

REPORT INFORMATION
  Report Type: Spontaneous
  Country: US (occurrence: US)
  Receive Date: 20191129
  Receipt Date: 20191129
  Transmission Date: 20200122
  Serious: Yes (Hospitalization)
  Sender: FDA-Public Use
  Company Number: US-AUROBINDO-AUR-APL-2019-074532

PATIENT
  Age: 14 Year
  Sex: Female

DRUGS (2)
  1. DEXMEDETOMIDINE INJECTION [Suspect]
     Active Substance: DEXMEDETOMIDINE
     Indication: CYCLIC VOMITING SYNDROME
     Dosage: FOR 30 MINUTES AT 0.3 MCG/KG/HOUR. INCREASE TO 0.5 MCG/ KG/HOUR FOR 16 HOURS.
     Route: 065
  2. MILRINONE [Concomitant]
     Active Substance: MILRINONE
     Indication: CYCLIC VOMITING SYNDROME
     Dosage: UNK
     Route: 065

REACTIONS (1)
  - Tachyphylaxis [Unknown]
